FAERS Safety Report 5206518-6 (Version None)
Quarter: 2006Q4

REPORT INFORMATION
  Report Type: 
  Country: None (occurrence: None)
  Receive Date: 20061026
  Receipt Date: 20060825
  Transmission Date: 20070319
  Serious: No
  Sender: FDA-Public Use
  Company Number: 2006104680

PATIENT
  Age: 60 Year
  Sex: Female

DRUGS (2)
  1. LYRICA [Suspect]
     Indication: NERVE INJURY
     Dosage: 150 MG (50 MG 3 IN 1 D)
     Dates: start: 20060601
  2. ALL OTHER THERAPEUTIC PRODUCTS (ALL OTHER THERAPEUTIC PRODUCTS) [Concomitant]

REACTIONS (3)
  - MULTIPLE ALLERGIES [None]
  - OEDEMA PERIPHERAL [None]
  - SWELLING [None]
